FAERS Safety Report 22323865 (Version 1)
Quarter: 2023Q2

REPORT INFORMATION
  Report Type: Other
  Country: IT (occurrence: None)
  Receive Date: 20230516
  Receipt Date: 20230516
  Transmission Date: 20230721
  Serious: No
  Sender: FDA-Public Use
  Company Number: IT-ROCHE-3350090

PATIENT
  Age: 57 Year
  Sex: Female
  Weight: 59 kg

DRUGS (16)
  1. OCRELIZUMAB [Suspect]
     Active Substance: OCRELIZUMAB
     Indication: Relapsing-remitting multiple sclerosis
     Route: 042
     Dates: start: 20200115
  2. OCRELIZUMAB [Suspect]
     Active Substance: OCRELIZUMAB
     Route: 042
     Dates: start: 20200129, end: 20200129
  3. OCRELIZUMAB [Suspect]
     Active Substance: OCRELIZUMAB
     Route: 042
     Dates: start: 20220920, end: 20220920
  4. OCRELIZUMAB [Suspect]
     Active Substance: OCRELIZUMAB
     Route: 042
     Dates: start: 20210224, end: 20210224
  5. OCRELIZUMAB [Suspect]
     Active Substance: OCRELIZUMAB
     Route: 042
     Dates: start: 20220315, end: 20220315
  6. OCRELIZUMAB [Suspect]
     Active Substance: OCRELIZUMAB
     Route: 042
     Dates: start: 20210915, end: 20210915
  7. OCRELIZUMAB [Suspect]
     Active Substance: OCRELIZUMAB
     Route: 042
     Dates: start: 20200115, end: 20200115
  8. OCRELIZUMAB [Suspect]
     Active Substance: OCRELIZUMAB
     Route: 042
     Dates: start: 20200806, end: 20200806
  9. OCRELIZUMAB [Suspect]
     Active Substance: OCRELIZUMAB
     Route: 042
     Dates: start: 20230321, end: 20230321
  10. LEVOTHYROXINE SODIUM [Concomitant]
     Active Substance: LEVOTHYROXINE SODIUM
     Dosage: MEDICATION ONGOING YES?MEDICATION FREQUENCY QD?MEDICATION INDICATION MEDICAL HISTORY
     Route: 048
  11. LANSOPRAZOLE [Concomitant]
     Active Substance: LANSOPRAZOLE
     Dosage: MEDICATION ONGOING YES?MEDICATION FREQUENCY QD?MEDICATION INDICATION PROPHYLAXIS
     Route: 048
  12. CITALOPRAM [Concomitant]
     Active Substance: CITALOPRAM HYDROBROMIDE
     Dosage: MEDICATION ONGOING YES?MEDICATION FREQUENCY QD?MEDICATION INDICATION PROPHYLAXIS
     Route: 048
  13. LIORESAL [Concomitant]
     Active Substance: BACLOFEN
     Dosage: MEDICATION ONGOING YES?MEDICATION FREQUENCY QD?MEDICATION INDICATION PROPHYLAXIS
     Route: 048
  14. SILODOSIN [Concomitant]
     Active Substance: SILODOSIN
     Route: 048
  15. RIVOTRIL [Concomitant]
     Active Substance: CLONAZEPAM
     Dosage: MEDICATION ONGOING YES?MEDICATION FREQUENCY QD?MEDICATION INDICATION PROPHYLAXIS
     Route: 065
  16. TAVOR (LORAZEPAM) [Concomitant]
     Active Substance: LORAZEPAM
     Dosage: MEDICATION ONGOING YES?MEDICATION FREQUENCY QD?MEDICATION INDICATION PROPHYLAXIS
     Route: 048

REACTIONS (1)
  - COVID-19 [Recovered/Resolved]

NARRATIVE: CASE EVENT DATE: 20220501
